FAERS Safety Report 26216790 (Version 1)
Quarter: 2025Q4

REPORT INFORMATION
  Report Type: Spontaneous
  Country: EU (occurrence: EU)
  Receive Date: 20251231
  Receipt Date: 20251231
  Transmission Date: 20260118
  Serious: Yes (Hospitalization)
  Sender: ACCORD
  Company Number: None

PATIENT
  Age: 35 Year
  Sex: Male
  Weight: 56 kg

DRUGS (1)
  1. METHOTREXATE [Suspect]
     Active Substance: METHOTREXATE
     Indication: Rheumatoid arthritis
     Dosage: 20 MG/D INSTEAD OF 20 MG/WEEK
     Dates: start: 20251111, end: 20251114

REACTIONS (5)
  - Medication error [Recovered/Resolved]
  - Skin erosion [Recovering/Resolving]
  - Mucosal erosion [Recovering/Resolving]
  - Accidental overdose [Recovered/Resolved]
  - Product communication issue [Recovered/Resolved]

NARRATIVE: CASE EVENT DATE: 20251111
